FAERS Safety Report 8932829 (Version 2)
Quarter: 2013Q2

REPORT INFORMATION
  Report Type: Spontaneous
  Country: BR (occurrence: BR)
  Receive Date: 20121128
  Receipt Date: 20130411
  Transmission Date: 20140414
  Serious: Yes (Hospitalization, Other)
  Sender: FDA-Public Use
  Company Number: BR-MERCK-1211BRA005361

PATIENT
  Age: 83 Year
  Sex: Female

DRUGS (9)
  1. JANUMET [Suspect]
     Indication: DIABETES MELLITUS
     Dosage: 2 DF, QD
     Route: 048
     Dates: start: 2011
  2. INSULINE NPH [Concomitant]
     Dosage: 2 DOSES
     Dates: end: 201209
  3. RASILEZ [Concomitant]
  4. PRESSAT [Concomitant]
  5. ATORVASTATIN [Concomitant]
  6. PURAN T4 [Concomitant]
  7. OS-CAL D [Concomitant]
  8. NEBILET [Concomitant]
  9. OMEPRAZOLE [Concomitant]

REACTIONS (3)
  - Bronchopneumonia [Recovered/Resolved]
  - Urinary tract infection [Recovered/Resolved]
  - Pancreatitis haemorrhagic [Recovered/Resolved]
